FAERS Safety Report 6255500-9 (Version None)
Quarter: 2009Q3

REPORT INFORMATION
  Report Type: 
  Country: None (occurrence: None)
  Receive Date: 20090702
  Receipt Date: 20090624
  Transmission Date: 20100115
  Serious: Yes (Other)
  Sender: FDA-Public Use
  Company Number: CZ-AMGEN-US343954

PATIENT
  Age: 63 Year
  Sex: Male

DRUGS (2)
  1. ENBREL [Suspect]
     Indication: PSORIASIS
     Route: 058
     Dates: start: 20090403
  2. RAMIPRIL [Concomitant]
     Indication: HYPERTENSION
     Route: 048

REACTIONS (6)
  - DERMATITIS EXFOLIATIVE [None]
  - ERYTHEMA [None]
  - HYPERSENSITIVITY [None]
  - PYREXIA [None]
  - SKIN EXFOLIATION [None]
  - SWELLING [None]
